FAERS Safety Report 4796471-1 (Version None)
Quarter: 2005Q4

REPORT INFORMATION
  Report Type: 
  Country: None (occurrence: None)
  Receive Date: 20051011
  Receipt Date: 20050512
  Transmission Date: 20060501
  Serious: Yes (Death)
  Sender: FDA-Public Use
  Company Number: 2005-05-0824

PATIENT
  Age: 66 Year
  Sex: Male

DRUGS (2)
  1. TEMODAR [Suspect]
     Indication: METASTASIS
     Dosage: 250  MG QD ORAL
     Route: 048
     Dates: start: 20050325, end: 20050422
  2. RADIATION THERAPY [Concomitant]

REACTIONS (1)
  - DISEASE PROGRESSION [None]
